FAERS Safety Report 4596889-6 (Version None)
Quarter: 2005Q1

REPORT INFORMATION
  Report Type: 
  Country: None (occurrence: None)
  Receive Date: 20050228
  Receipt Date: 20050124
  Transmission Date: 20050727
  Serious: No
  Sender: FDA-Public Use
  Company Number: 211969

PATIENT
  Age: 77 Year
  Sex: Female

DRUGS (1)
  1. TNKASE [Suspect]
     Indication: MYOCARDIAL INFARCTION
     Dates: start: 20041217

REACTIONS (3)
  - ANAEMIA [None]
  - NOSOCOMIAL INFECTION [None]
  - PNEUMONIA [None]
